FAERS Safety Report 9297986 (Version 2)
Quarter: 2013Q2

REPORT INFORMATION
  Report Type: Spontaneous
  Country: US (occurrence: US)
  Receive Date: 20130520
  Receipt Date: 20130521
  Transmission Date: 20140414
  Serious: Yes (Other)
  Sender: FDA-Public Use
  Company Number: US-PFIZER INC-2013154426

PATIENT
  Age: 49 Year
  Sex: Female
  Weight: 145 kg

DRUGS (8)
  1. LYRICA [Suspect]
     Indication: DIABETIC NEPHROPATHY
     Dosage: 50 MG/DAY
  2. GLIPIZIDE [Concomitant]
     Indication: DIABETES MELLITUS
     Dosage: 5 MG, 2X/DAY
  3. SENSIPAR [Concomitant]
     Indication: RENAL DISORDER
     Dosage: 30 MG, WEEKLY (EVERY FRIDAY)
  4. NOVOLIN N [Concomitant]
     Indication: DIABETES MELLITUS
     Dosage: 80 IU IN MORNING AND 100 IU AT NIGHT
  5. METOPROLOL [Concomitant]
     Indication: HYPERTENSION
     Dosage: 50 MG, 2X/DAY
  6. LISINOPRIL [Concomitant]
     Indication: HYPERTENSION
     Dosage: 20 MG/DAY
  7. NIFEDIPINE [Concomitant]
     Indication: HYPERTENSION
     Dosage: 60 MG/DAY
  8. FLUOXETINE [Concomitant]
     Indication: DEPRESSION
     Dosage: 40 MG/DAY

REACTIONS (1)
  - Diabetic gangrene [Unknown]
